FAERS Safety Report 9473466 (Version 1)
Quarter: 2013Q3

REPORT INFORMATION
  Report Type: Spontaneous
  Country: CN (occurrence: CN)
  Receive Date: 20130823
  Receipt Date: 20130823
  Transmission Date: 20140515
  Serious: Yes (Hospitalization)
  Sender: FDA-Public Use
  Company Number: CN-PFIZER INC-2013239499

PATIENT
  Age: 59 Year
  Sex: Male
  Weight: 59 kg

DRUGS (9)
  1. LIPITOR [Suspect]
     Indication: ARTERIOSCLEROSIS CORONARY ARTERY
     Dosage: 1 DF, 1X/DAY
     Route: 048
     Dates: start: 20111107, end: 20111124
  2. WARFARIN [Concomitant]
     Dosage: UNK
     Dates: start: 20111104, end: 20111107
  3. ALLOPURINOL [Concomitant]
     Dosage: UNK
     Dates: start: 20111107, end: 20111124
  4. IRBESARTAN [Concomitant]
     Dosage: UNK
     Dates: start: 20111107, end: 20111124
  5. ELANTAN [Concomitant]
     Dosage: UNK
     Dates: start: 20111107, end: 20111124
  6. CLOPIDOGREL SULFATE [Concomitant]
     Dosage: UNK
     Dates: start: 20111107, end: 20111124
  7. CLOPIDOGREL BISULFATE [Concomitant]
     Dosage: UNK
     Dates: start: 20111107, end: 20111124
  8. CLOPIDOGREL [Concomitant]
     Dosage: UNK
     Dates: start: 20111107, end: 20111124
  9. ISOSORBIDE MONONITRATE SUSTAINED-RELEASE [Concomitant]
     Dosage: UNK
     Dates: start: 20111107, end: 20111124

REACTIONS (6)
  - Drug eruption [Recovering/Resolving]
  - Nephritis [Recovering/Resolving]
  - Hepatocellular injury [Recovering/Resolving]
  - Temperature intolerance [Recovering/Resolving]
  - Chills [Recovering/Resolving]
  - Pyrexia [Recovering/Resolving]
